FAERS Safety Report 22610738 (Version 1)
Quarter: 2023Q2

REPORT INFORMATION
  Report Type: Spontaneous
  Country: US (occurrence: US)
  Receive Date: 20230616
  Receipt Date: 20230616
  Transmission Date: 20230722
  Serious: Yes (Other)
  Sender: FDA-Public Use
  Company Number: US-TEVA-2023-US-2895725

PATIENT
  Age: 63 Year
  Sex: Male

DRUGS (1)
  1. COPAXONE [Suspect]
     Active Substance: GLATIRAMER ACETATE
     Indication: Multiple sclerosis
     Dosage: STRENGTH: 40 MG/ML, DOSE: 40 MG, 6 YEARS
     Route: 065

REACTIONS (3)
  - Disability [Unknown]
  - Fall [Unknown]
  - Gait disturbance [Unknown]
